FAERS Safety Report 12884306 (Version 1)
Quarter: 2016Q4

REPORT INFORMATION
  Report Type: Spontaneous
  Country: US (occurrence: US)
  Receive Date: 20161026
  Receipt Date: 20161026
  Transmission Date: 20170207
  Serious: No
  Sender: FDA-Public Use
  Company Number: US-BIOGEN-2016BI00306296

PATIENT
  Sex: Female

DRUGS (1)
  1. AVONEX [Suspect]
     Active Substance: INTERFERON BETA-1A
     Indication: MULTIPLE SCLEROSIS
     Route: 065
     Dates: start: 20160928

REACTIONS (9)
  - Nausea [Unknown]
  - Lethargy [Unknown]
  - Injection site pain [Unknown]
  - Diarrhoea [Unknown]
  - Muscle atrophy [Unknown]
  - Fatigue [Unknown]
  - Mental impairment [Unknown]
  - General symptom [Unknown]
  - Dyspepsia [Unknown]
